FAERS Safety Report 25550099 (Version 1)
Quarter: 2025Q3

REPORT INFORMATION
  Report Type: Spontaneous
  Country: GB (occurrence: GB)
  Receive Date: 20250714
  Receipt Date: 20250714
  Transmission Date: 20251021
  Serious: Yes (Other)
  Sender: MYLAN
  Company Number: None

PATIENT
  Age: 22 Year
  Sex: Female
  Weight: 59 kg

DRUGS (12)
  1. CITALOPRAM [Suspect]
     Active Substance: CITALOPRAM
     Indication: Product used for unknown indication
     Dosage: 1 DOSAGE FORM, QD (ONE TO BE TAKEN EACH DAY)
     Dates: start: 20250528, end: 20250602
  2. CITALOPRAM [Suspect]
     Active Substance: CITALOPRAM
     Dosage: 1 DOSAGE FORM, QD (ONE TO BE TAKEN EACH DAY)
     Route: 065
     Dates: start: 20250528, end: 20250602
  3. CITALOPRAM [Suspect]
     Active Substance: CITALOPRAM
     Dosage: 1 DOSAGE FORM, QD (ONE TO BE TAKEN EACH DAY)
     Route: 065
     Dates: start: 20250528, end: 20250602
  4. CITALOPRAM [Suspect]
     Active Substance: CITALOPRAM
     Dosage: 1 DOSAGE FORM, QD (ONE TO BE TAKEN EACH DAY)
     Dates: start: 20250528, end: 20250602
  5. PROMETHAZINE HYDROCHLORIDE [Concomitant]
     Active Substance: PROMETHAZINE HYDROCHLORIDE
     Dosage: 25 MILLIGRAM, PM (25MG TABLETS ONE TO BE TAKEN AT NIGHT)
     Dates: start: 20250528
  6. PROMETHAZINE HYDROCHLORIDE [Concomitant]
     Active Substance: PROMETHAZINE HYDROCHLORIDE
     Dosage: 25 MILLIGRAM, PM (25MG TABLETS ONE TO BE TAKEN AT NIGHT)
     Route: 065
     Dates: start: 20250528
  7. PROMETHAZINE HYDROCHLORIDE [Concomitant]
     Active Substance: PROMETHAZINE HYDROCHLORIDE
     Dosage: 25 MILLIGRAM, PM (25MG TABLETS ONE TO BE TAKEN AT NIGHT)
     Route: 065
     Dates: start: 20250528
  8. PROMETHAZINE HYDROCHLORIDE [Concomitant]
     Active Substance: PROMETHAZINE HYDROCHLORIDE
     Dosage: 25 MILLIGRAM, PM (25MG TABLETS ONE TO BE TAKEN AT NIGHT)
     Dates: start: 20250528
  9. ETHINYL ESTRADIOL\LEVONORGESTREL [Concomitant]
     Active Substance: ETHINYL ESTRADIOL\LEVONORGESTREL
     Dosage: 1 DOSAGE FORM, QD (ONE TABLET DAILY FOR 21 DAYS; SUBSEQUENT COURSES REPEATED AFTER 7-DAY TABLET FREE INTERVAL)
     Dates: start: 20250611
  10. ETHINYL ESTRADIOL\LEVONORGESTREL [Concomitant]
     Active Substance: ETHINYL ESTRADIOL\LEVONORGESTREL
     Dosage: 1 DOSAGE FORM, QD (ONE TABLET DAILY FOR 21 DAYS; SUBSEQUENT COURSES REPEATED AFTER 7-DAY TABLET FREE INTERVAL)
     Route: 065
     Dates: start: 20250611
  11. ETHINYL ESTRADIOL\LEVONORGESTREL [Concomitant]
     Active Substance: ETHINYL ESTRADIOL\LEVONORGESTREL
     Dosage: 1 DOSAGE FORM, QD (ONE TABLET DAILY FOR 21 DAYS; SUBSEQUENT COURSES REPEATED AFTER 7-DAY TABLET FREE INTERVAL)
     Route: 065
     Dates: start: 20250611
  12. ETHINYL ESTRADIOL\LEVONORGESTREL [Concomitant]
     Active Substance: ETHINYL ESTRADIOL\LEVONORGESTREL
     Dosage: 1 DOSAGE FORM, QD (ONE TABLET DAILY FOR 21 DAYS; SUBSEQUENT COURSES REPEATED AFTER 7-DAY TABLET FREE INTERVAL)
     Dates: start: 20250611

REACTIONS (8)
  - Depressed mood [Unknown]
  - Chills [Recovered/Resolved]
  - Malaise [Recovered/Resolved]
  - Abdominal discomfort [Unknown]
  - Palpitations [Recovered/Resolved]
  - Nausea [Recovered/Resolved]
  - Vomiting [Recovered/Resolved]
  - Anxiety [Recovering/Resolving]

NARRATIVE: CASE EVENT DATE: 20250528
